FAERS Safety Report 23981256 (Version 1)
Quarter: 2024Q2

REPORT INFORMATION
  Report Type: Spontaneous
  Country: US (occurrence: None)
  Receive Date: 20240614
  Receipt Date: 20240614
  Transmission Date: 20240716
  Serious: Yes (Life-Threatening, Hospitalization)
  Sender: FDA-Public Use
  Company Number: None

PATIENT
  Age: 46 Year
  Sex: Female
  Weight: 121.5 kg

DRUGS (8)
  1. MIRALAX [Suspect]
     Active Substance: POLYETHYLENE GLYCOL 3350
     Indication: Colonoscopy
     Dosage: OTHER QUANTITY : 1 PACKET 0.5OUNCES?OTHER FREQUENCY : ONLY TOOK ONCE?OTHER ROUTE : ADDED TO WATER?
     Route: 050
     Dates: start: 20240612, end: 20240612
  2. ESCITALOPRAM [Concomitant]
  3. Buproprion [Concomitant]
  4. ADDERALL [Concomitant]
     Active Substance: AMPHETAMINE ASPARTATE\AMPHETAMINE SULFATE\DEXTROAMPHETAMINE SACCHARATE\DEXTROAMPHETAMINE SULFATE
  5. GLUCOSAMINE [Concomitant]
  6. tumeric [Concomitant]
  7. DIMETHYL SULFONE [Concomitant]
     Active Substance: DIMETHYL SULFONE
  8. ZINC [Concomitant]
     Active Substance: PYRITHIONE ZINC\ZINC\ZINC CHLORIDE

REACTIONS (27)
  - Urticaria [None]
  - Pruritus [None]
  - Nausea [None]
  - Lip swelling [None]
  - Chills [None]
  - Chills [None]
  - Muscle rigidity [None]
  - Muscle spasms [None]
  - Muscle spasms [None]
  - Muscle spasms [None]
  - Dyspnoea [None]
  - Dizziness [None]
  - Pallor [None]
  - Lip discolouration [None]
  - Swelling face [None]
  - Speech disorder [None]
  - Movement disorder [None]
  - Disturbance in attention [None]
  - Fall [None]
  - Eye movement disorder [None]
  - Cough [None]
  - Chest discomfort [None]
  - Blood pressure increased [None]
  - Pain in extremity [None]
  - Pain in extremity [None]
  - Emotional distress [None]
  - Suspected product contamination [None]

NARRATIVE: CASE EVENT DATE: 20240612
